FAERS Safety Report 9803093 (Version 2)
Quarter: 2014Q2

REPORT INFORMATION
  Report Type: Spontaneous
  Country: BR (occurrence: BR)
  Receive Date: 20140108
  Receipt Date: 20140408
  Transmission Date: 20141212
  Serious: Yes (Death, Hospitalization)
  Sender: FDA-Public Use
  Company Number: BR-SA-2014SA002000

PATIENT
  Age: 9 Month
  Sex: Male

DRUGS (1)
  1. MYOZYME [Suspect]
     Indication: GLYCOGEN STORAGE DISEASE TYPE II
     Dosage: DOSE :2 VIALS EVERY TWO WEEKS
     Route: 042
     Dates: start: 20131111, end: 20131216

REACTIONS (5)
  - Death [Fatal]
  - Hypotonia [Unknown]
  - Poor sucking reflex [Unknown]
  - Dysphonia [Unknown]
  - Cardiomegaly [Unknown]
